FAERS Safety Report 9580032 (Version 1)
Quarter: 2013Q4

REPORT INFORMATION
  Report Type: Spontaneous
  Country: US (occurrence: US)
  Receive Date: 20131002
  Receipt Date: 20131002
  Transmission Date: 20140711
  Serious: Yes (Hospitalization)
  Sender: FDA-Public Use
  Company Number: US-BAYER-2013-117666

PATIENT
  Age: 25 Year
  Sex: Female

DRUGS (11)
  1. YASMIN [Suspect]
  2. VICODIN [Concomitant]
  3. MOTRIN [Concomitant]
  4. FLEXERIL [Concomitant]
  5. ZITHROMAX [Concomitant]
  6. AVELOX [Concomitant]
  7. CEFOTAXIME [Concomitant]
  8. MOXIFLOXACIN [Concomitant]
  9. MOXIFLOXACIN [Concomitant]
  10. AZITHROMYCIN [Concomitant]
  11. ROBITUSSIN DM [DEXTROMETHORPHAN HYDROBROMIDE,ETHANOL,GUAIFENESIN] [Concomitant]

REACTIONS (2)
  - Pulmonary embolism [Recovered/Resolved]
  - Cholelithiasis [None]
